FAERS Safety Report 5973627-3 (Version None)
Quarter: 2008Q4

REPORT INFORMATION
  Report Type: 
  Country: None (occurrence: None)
  Receive Date: 20081201
  Receipt Date: 20081121
  Transmission Date: 20090506
  Serious: Yes (Other)
  Sender: FDA-Public Use
  Company Number: US-JNJCH-2008055441

PATIENT
  Age: 46 Year
  Sex: Female
  Weight: 68 kg

DRUGS (1)
  1. LUBRIDERM DAILY MOISTURE [Suspect]
     Indication: DRY SKIN
     Dosage: TEXT:ONCE A DAY AFTER SHOWER
     Route: 061

REACTIONS (3)
  - APPLICATION SITE BURN [None]
  - PRODUCT QUALITY ISSUE [None]
  - PRODUCT TAMPERING [None]
